FAERS Safety Report 7748970-8 (Version None)
Quarter: 2011Q3

REPORT INFORMATION
  Report Type: 
  Country: None (occurrence: None)
  Receive Date: 20110914
  Receipt Date: 20110627
  Transmission Date: 20111222
  Serious: No
  Sender: FDA-Public Use
  Company Number: US-MYLANLABS-2011S1010278

PATIENT
  Age: 65 Year
  Sex: Female

DRUGS (11)
  1. FISH OIL [Concomitant]
  2. FLAXSEED OIL [Concomitant]
  3. BETA CAROTENE [Concomitant]
  4. ESTROPIPATE [Suspect]
     Indication: MENOPAUSE
     Dosage: 1 QD
     Route: 048
     Dates: start: 20110101
  5. VITAMIN B-12 [Concomitant]
  6. ASCORBIC ACID [Concomitant]
  7. FOLIC ACID [Concomitant]
  8. VITAMIN TAB [Concomitant]
  9. CALCIUM CARBONATE [Concomitant]
  10. VITAMIN D [Concomitant]
  11. ZINC [Concomitant]

REACTIONS (4)
  - BREAST ENLARGEMENT [None]
  - WEIGHT INCREASED [None]
  - BREAST TENDERNESS [None]
  - SWELLING [None]
